FAERS Safety Report 5113137-9 (Version None)
Quarter: 2006Q3

REPORT INFORMATION
  Report Type: 
  Country: None (occurrence: None)
  Receive Date: 20060820
  Receipt Date: 20060901
  Transmission Date: 20061208
  Serious: Yes (Hospitalization)
  Sender: FDA-Public Use
  Company Number: US200609000453

PATIENT
  Age: 48 Year
  Sex: Female
  Weight: 102.5 kg

DRUGS (3)
  1. ZYPREXA [Suspect]
     Dosage: 4 MG
     Dates: start: 20040101
  2. ARIPIPRAZOLE (ARIPIPRAZOLE) [Concomitant]
  3. VENLAFAXINE HCL [Concomitant]

REACTIONS (3)
  - CONDITION AGGRAVATED [None]
  - CORONARY ARTERIAL STENT INSERTION [None]
  - DIABETES MELLITUS [None]
